FAERS Safety Report 4272263-7 (Version None)
Quarter: 2004Q1

REPORT INFORMATION
  Report Type: 
  Country: None (occurrence: None)
  Receive Date: 20040114
  Receipt Date: 20040105
  Transmission Date: 20041129
  Serious: Yes (Hospitalization, Disabling)
  Sender: FDA-Public Use
  Company Number: 2003119973

PATIENT
  Age: 60 Year
  Sex: Male
  Weight: 85 kg

DRUGS (8)
  1. NEURONTIN [Suspect]
     Indication: DIABETIC NEUROPATHY
     Dosage: 1800 MG (TID), ORAL
     Route: 048
     Dates: start: 20030601
  2. NITRENDIPINE (NITRENDIPINE) [Concomitant]
  3. INSULIN LISPRO (INSULIN LISPRO) [Concomitant]
  4. RAMIPRIL [Concomitant]
  5. TORSEMIDE [Concomitant]
  6. HEPARIN-FRACTION, CALCIUM SALT (HEPARIN FRACTION, CALCIUM SALT) [Concomitant]
  7. CLINDAMYCIN HYDROCHLORIDE [Concomitant]
  8. PENTOXIFYLLINE (PENTIXIFYLLINE) [Concomitant]

REACTIONS (2)
  - POST THROMBOTIC SYNDROME [None]
  - VENOUS THROMBOSIS LIMB [None]
